FAERS Safety Report 8406022-8 (Version None)
Quarter: 2012Q2

REPORT INFORMATION
  Report Type: 
  Country: None (occurrence: None)
  Receive Date: 20120529
  Receipt Date: 20100512
  Transmission Date: 20120825
  Serious: Yes (Other)
  Sender: FDA-Public Use
  Company Number: 009770

PATIENT
  Age: 60 Year
  Sex: Male

DRUGS (5)
  1. CILOSTAZOL [Suspect]
     Dosage: 200;100 MG MILLIGRAM(S), DAILY DOSE, ORAL
     Route: 048
  2. ASPIRIN [Concomitant]
  3. ATORVASTATIN [Concomitant]
  4. ALLOPURINOL [Concomitant]
  5. OMEPRAZOLE [Concomitant]

REACTIONS (2)
  - RENAL FAILURE [None]
  - TACHYCARDIA [None]
